FAERS Safety Report 9431106 (Version 1)
Quarter: 2013Q3

REPORT INFORMATION
  Report Type: Spontaneous
  Country: FR (occurrence: FR)
  Receive Date: 20130730
  Receipt Date: 20130730
  Transmission Date: 20140515
  Serious: Yes (Hospitalization)
  Sender: FDA-Public Use
  Company Number: FR-ASTRAZENECA-2013SE55935

PATIENT
  Age: 82 Year
  Sex: Male

DRUGS (3)
  1. INEXIUM [Suspect]
     Route: 048
     Dates: start: 20130426, end: 20130430
  2. AUGMENTIN [Suspect]
     Indication: OTITIS MEDIA
     Route: 048
     Dates: start: 20130426
  3. INNOHEP [Suspect]
     Route: 058
     Dates: start: 20130419

REACTIONS (3)
  - Chills [Recovered/Resolved]
  - Purpura [Recovered/Resolved]
  - Rash maculo-papular [Recovered/Resolved]
